FAERS Safety Report 5652099-2 (Version None)
Quarter: 2008Q1

REPORT INFORMATION
  Report Type: 
  Country: None (occurrence: None)
  Receive Date: 20080304
  Receipt Date: 20080225
  Transmission Date: 20080703
  Serious: Yes (Death)
  Sender: FDA-Public Use
  Company Number: T07-GER-05675-01

PATIENT
  Age: 84 Year
  Sex: Female

DRUGS (8)
  1. MEMANTINE HCL [Suspect]
     Indication: DEMENTIA
     Dosage: 2 TABLET QD PO
     Route: 048
     Dates: start: 20070815
  2. ENALAPRIL MALEATE [Concomitant]
  3. METOPROLOL TARTRATE [Concomitant]
  4. DIHYDRALAZINE SULFATE [Concomitant]
  5. XIPAMIDE [Concomitant]
  6. SIMVASTATIN [Concomitant]
  7. ACETYLSALICYLIC ACID [Concomitant]
  8. LEVODOPA [Concomitant]

REACTIONS (17)
  - CEREBRAL HAEMORRHAGE [None]
  - EXTENSOR PLANTAR RESPONSE [None]
  - FALL [None]
  - HEAD INJURY [None]
  - HYPERREFLEXIA [None]
  - HYPERTENSIVE HEART DISEASE [None]
  - MALIGNANT HYPERTENSION [None]
  - MUSCLE SPASMS [None]
  - RENAL DISORDER [None]
  - RENAL FAILURE [None]
  - SHOCK [None]
  - SOMNOLENCE [None]
  - SPEECH DISORDER [None]
  - SUBARACHNOID HAEMORRHAGE [None]
  - SUBDURAL HAEMORRHAGE [None]
  - SYNCOPE [None]
  - VERTIGO [None]
